FAERS Safety Report 8502525-6 (Version None)
Quarter: 2012Q3

REPORT INFORMATION
  Report Type: 
  Country: None (occurrence: None)
  Receive Date: 20120711
  Receipt Date: 20120703
  Transmission Date: 20120928
  Serious: Yes (Hospitalization)
  Sender: FDA-Public Use
  Company Number: US-US-EMD SERONO, INC.-7146007

PATIENT
  Sex: Female

DRUGS (6)
  1. REBIF [Suspect]
     Dates: start: 20120409
  2. OXYCODONE HCL [Concomitant]
     Indication: PRODUCT USED FOR UNKNOWN INDICATION
  3. BACLOFEN [Concomitant]
     Indication: MUSCLE SPASMS
  4. UNSPECIFIED BLOOD PRESSURE MEDICATION [Concomitant]
     Indication: HYPERTENSION
  5. REBIF [Suspect]
     Indication: MULTIPLE SCLEROSIS
     Dates: start: 20110228, end: 20120115
  6. BACTRIM [Concomitant]
     Indication: BACTERIAL DISEASE CARRIER

REACTIONS (2)
  - BLADDER DISORDER [None]
  - MULTIPLE SCLEROSIS RELAPSE [None]
